FAERS Safety Report 14892895 (Version 1)
Quarter: 2018Q2

REPORT INFORMATION
  Report Type: Spontaneous
  Country: FR (occurrence: FR)
  Receive Date: 20180514
  Receipt Date: 20180514
  Transmission Date: 20180711
  Serious: Yes (Life-Threatening, Hospitalization)
  Sender: FDA-Public Use
  Company Number: FR-MYLANLABS-2018M1031115

PATIENT
  Age: 64 Year
  Sex: Female
  Weight: 62.7 kg

DRUGS (4)
  1. MESNA. [Suspect]
     Active Substance: MESNA
     Indication: AMYLOIDOSIS
     Dosage: 200 MG, QD
     Route: 041
     Dates: start: 20180119, end: 20180119
  2. DEXAMETHASONE. [Suspect]
     Active Substance: DEXAMETHASONE
     Indication: AMYLOIDOSIS
     Dosage: 20 MG, QD
     Route: 042
     Dates: start: 20180119, end: 20180119
  3. ENDOXAN                            /00021102/ [Suspect]
     Active Substance: CYCLOPHOSPHAMIDE
     Indication: AMYLOIDOSIS
     Dosage: 500 MG, QD
     Route: 041
     Dates: start: 20180119, end: 20180119
  4. VELCADE [Suspect]
     Active Substance: BORTEZOMIB
     Indication: AMYLOIDOSIS
     Dosage: 2.17 MG, QD
     Route: 041
     Dates: start: 20180119, end: 20180119

REACTIONS (1)
  - Cardiorenal syndrome [Recovered/Resolved]

NARRATIVE: CASE EVENT DATE: 20180119
